FAERS Safety Report 9618778 (Version 1)
Quarter: 2013Q4

REPORT INFORMATION
  Report Type: Spontaneous
  Country: SE (occurrence: SE)
  Receive Date: 20131014
  Receipt Date: 20131014
  Transmission Date: 20140711
  Serious: Yes (Other)
  Sender: FDA-Public Use
  Company Number: PHHY2013SE114633

PATIENT
  Sex: Male

DRUGS (2)
  1. LEPONEX [Suspect]
     Dosage: UNK UKN, UNK
  2. LEPONEX [Suspect]
     Dosage: UNK UKN, UNK
     Dates: start: 20130520

REACTIONS (2)
  - Pericarditis [Recovering/Resolving]
  - Blood count abnormal [Unknown]
